FAERS Safety Report 14365267 (Version 1)
Quarter: 2018Q1

REPORT INFORMATION
  Report Type: Other
  Country: US (occurrence: US)
  Receive Date: 20180108
  Receipt Date: 20180108
  Transmission Date: 20180509
  Serious: Yes (Death)
  Sender: FDA-Public Use
  Company Number: US-TEIKOKU PHARMA USA-TPU2018-00008

PATIENT
  Age: 63 Year
  Sex: Female

DRUGS (4)
  1. LIDOCAINE. [Suspect]
     Active Substance: LIDOCAINE
     Route: 065
  2. BUTALBITAL [Suspect]
     Active Substance: BUTALBITAL
  3. NAPROXEN. [Suspect]
     Active Substance: NAPROXEN
  4. OXYCODONE [Suspect]
     Active Substance: OXYCODONE

REACTIONS (1)
  - Death [Fatal]
